FAERS Safety Report 6029709-3 (Version None)
Quarter: 2009Q1

REPORT INFORMATION
  Report Type: 
  Country: None (occurrence: None)
  Receive Date: 20090107
  Receipt Date: 20081224
  Transmission Date: 20090719
  Serious: Yes (Life-Threatening, Hospitalization)
  Sender: FDA-Public Use
  Company Number: AU-PFIZER INC-2005112431

PATIENT

DRUGS (6)
  1. SUNITINIB MALATE [Suspect]
     Indication: RENAL CANCER
     Dosage: DAILY
     Route: 048
     Dates: start: 20050716
  2. ESOMEPRAZOLE MAGNESIUM [Concomitant]
     Route: 048
     Dates: start: 20050501
  3. METOCLOPRAMIDE [Concomitant]
     Route: 048
     Dates: start: 20050501
  4. TRAMADOL HCL [Concomitant]
     Route: 048
     Dates: start: 20050501
  5. ENOXAPARIN SODIUM [Concomitant]
     Route: 058
     Dates: start: 20050623
  6. ACETAMINOPHEN [Concomitant]
     Route: 048
     Dates: start: 20040101

REACTIONS (1)
  - RENAL FAILURE [None]
